FAERS Safety Report 5292982-3 (Version None)
Quarter: 2007Q2

REPORT INFORMATION
  Report Type: 
  Country: None (occurrence: None)
  Receive Date: 20070411
  Receipt Date: 20070402
  Transmission Date: 20071010
  Serious: Yes (Hospitalization)
  Sender: FDA-Public Use
  Company Number: HQWYE330102APR07

PATIENT
  Age: 75 Year
  Sex: Female

DRUGS (3)
  1. AMIODARONE HYDROCHLORIDE [Suspect]
     Dosage: 200 MG TABLET, FREQUENCY UNKNOWN
     Route: 048
     Dates: end: 20060527
  2. DIGOXIN [Interacting]
     Dosage: 0.25 MG TABLET, FREQUENCY UNKNOWN
     Route: 048
     Dates: end: 20060527
  3. COROPRES [Interacting]
     Indication: ATRIAL FIBRILLATION
     Dosage: 6.25 MG TABLET, FREQUENCY UNKNOWN
     Route: 048
     Dates: end: 20060527

REACTIONS (2)
  - BRADYCARDIA [None]
  - DRUG INTERACTION [None]
